FAERS Safety Report 14924236 (Version 1)
Quarter: 2018Q2

REPORT INFORMATION
  Report Type: Spontaneous
  Country: CN (occurrence: CN)
  Receive Date: 20180522
  Receipt Date: 20180522
  Transmission Date: 20180711
  Serious: Yes (Other)
  Sender: FDA-Public Use
  Company Number: CN-PFIZER INC-2018201950

PATIENT
  Age: 59 Year
  Sex: Male

DRUGS (4)
  1. VFEND [Suspect]
     Active Substance: VORICONAZOLE
     Dosage: 0.2 G, 2X/DAY (FIRST DOSE 0.4G, AND THEN 0.2G Q12)
     Route: 041
     Dates: end: 20180512
  2. VORICONAZOLE. [Suspect]
     Active Substance: VORICONAZOLE
     Dosage: 0.2 G, 2X/DAY
     Route: 048
     Dates: start: 20180512
  3. PREDNISONE. [Concomitant]
     Active Substance: PREDNISONE
     Dosage: UNK
  4. VFEND [Suspect]
     Active Substance: VORICONAZOLE
     Dosage: 0.4 G, UNK (FIRST DOSE 0.4G, AND THEN 0.2G Q12)
     Route: 041
     Dates: start: 20180506

REACTIONS (9)
  - Alanine aminotransferase increased [Unknown]
  - Flushing [Unknown]
  - Tachypnoea [Unknown]
  - Jaundice [Unknown]
  - Heart rate increased [Unknown]
  - Blood uric acid increased [Unknown]
  - Acidosis [Unknown]
  - Blood potassium increased [Unknown]
  - Renal impairment [Unknown]

NARRATIVE: CASE EVENT DATE: 20180512
